FAERS Safety Report 7232816-0 (Version None)
Quarter: 2011Q1

REPORT INFORMATION
  Report Type: 
  Country: None (occurrence: None)
  Receive Date: 20110110
  Receipt Date: 20101228
  Transmission Date: 20110831
  Serious: Yes (Other)
  Sender: FDA-Public Use
  Company Number: 019589

PATIENT
  Sex: Female
  Weight: 68 kg

DRUGS (13)
  1. CITALOPRAM HYDROBROMIDE [Concomitant]
  2. NOVAMINSULFON [Concomitant]
  3. AMIODARONE HCL [Concomitant]
  4. L-THYROXINE /00068001/ [Concomitant]
  5. BISOPROLOL [Concomitant]
  6. MAGNESIUM [Concomitant]
  7. CETRIZINE [Concomitant]
  8. SIMVASTATIN [Concomitant]
  9. OMEPRAZOLE [Concomitant]
  10. VALPROIC ACID [Concomitant]
  11. ASA [Concomitant]
  12. LACOSAMIDE [Suspect]
     Indication: EPILEPSY
     Dosage: (150 MG, 50 MG ; 150MG ORAL) ; (150 MG BID)
     Dates: start: 20100614, end: 20100705
  13. LACOSAMIDE [Suspect]
     Indication: EPILEPSY
     Dosage: (150 MG, 50 MG ; 150MG ORAL) ; (150 MG BID)
     Dates: start: 20100719

REACTIONS (14)
  - MYOCARDIAL INFARCTION [None]
  - VENTRICULAR FIBRILLATION [None]
  - TRICUSPID VALVE INCOMPETENCE [None]
  - VENTRICULAR TACHYCARDIA [None]
  - CARDIAC FAILURE [None]
  - DILATATION VENTRICULAR [None]
  - OSTEOSYNTHESIS [None]
  - RASH [None]
  - ATRIAL FIBRILLATION [None]
  - VENTRICULAR DYSFUNCTION [None]
  - SYNCOPE [None]
  - MITRAL VALVE INCOMPETENCE [None]
  - DIASTOLIC DYSFUNCTION [None]
  - HEART RATE DECREASED [None]
